FAERS Safety Report 19697902 (Version 1)
Quarter: 2021Q3

REPORT INFORMATION
  Report Type: Spontaneous
  Country: FR (occurrence: FR)
  Receive Date: 20210813
  Receipt Date: 20210813
  Transmission Date: 20211014
  Serious: Yes (Other)
  Sender: FDA-Public Use
  Company Number: FR-MYLANLABS-2021M1049347

PATIENT
  Age: 76 Year
  Sex: Female
  Weight: 78 kg

DRUGS (11)
  1. DEXAMETHASONE MYLAN 20 MG/5 ML, SOLUTION INJECTABLE EN AMPOULE [Suspect]
     Active Substance: DEXAMETHASONE
     Indication: PLASMA CELL MYELOMA
     Dosage: 1 PER DAY
     Route: 042
     Dates: start: 20210121, end: 20210122
  2. ACUPAIN                            /00396102/ [Concomitant]
     Dosage: SI BESOIN
     Route: 048
  3. UVEDOSE [Concomitant]
     Active Substance: CHOLECALCIFEROL
     Dosage: UNK
     Route: 048
  4. DARZALEX [Suspect]
     Active Substance: DARATUMUMAB
     Indication: PLASMA CELL MYELOMA
     Dosage: 1200 MILLIGRAM, QD
     Route: 042
     Dates: start: 20210121, end: 20210122
  5. LOVENOX [Concomitant]
     Active Substance: ENOXAPARIN SODIUM
     Dosage: UNK
     Route: 058
  6. REVLIMID [Suspect]
     Active Substance: LENALIDOMIDE
     Indication: PLASMA CELL MYELOMA
     Dosage: 1 DOSAGE FORM, QD
     Route: 048
     Dates: start: 20210121, end: 20210122
  7. HYDROCORTISONE UPJOHN [Concomitant]
     Active Substance: HYDROCORTISONE
     Dosage: 50 MILLIGRAM, QD
     Route: 042
     Dates: start: 20210121, end: 20210122
  8. WELLVONE [Concomitant]
     Active Substance: ATOVAQUONE
     Dosage: UNK
     Route: 048
  9. LOXEN                              /00639802/ [Concomitant]
     Active Substance: NICARDIPINE HYDROCHLORIDE
     Dosage: UNK
     Route: 042
     Dates: start: 20210121
  10. PRIMPERAN [Concomitant]
     Active Substance: METOCLOPRAMIDE HYDROCHLORIDE
     Dosage: IF NECESSARY
     Route: 042
  11. VALACICLOVIR [Concomitant]
     Active Substance: VALACYCLOVIR HYDROCHLORIDE
     Dosage: UNK
     Route: 048

REACTIONS (2)
  - Hepatic cytolysis [Recovering/Resolving]
  - Cytokine release syndrome [Recovered/Resolved]

NARRATIVE: CASE EVENT DATE: 20210121
